FAERS Safety Report 9671153 (Version 1)
Quarter: 2013Q4

REPORT INFORMATION
  Report Type: Spontaneous
  Country: US (occurrence: US)
  Receive Date: 20131106
  Receipt Date: 20131106
  Transmission Date: 20140711
  Serious: Yes (Life-Threatening)
  Sender: FDA-Public Use
  Company Number: US-DRREDDYS-USA/USA/13/0035374

PATIENT
  Age: 31 Year
  Sex: Female

DRUGS (7)
  1. OLANZAPINE ORALLY DISINTEGRATING TABLET [Suspect]
     Indication: PRODUCT USED FOR UNKNOWN INDICATION
     Route: 048
  2. ONDANSETRON [Suspect]
     Indication: NAUSEA
     Route: 065
  3. HALOPERIDOL [Suspect]
     Indication: AGITATION
     Route: 042
  4. HALOPERIDOL [Suspect]
     Dosage: AVERAGE DAILY DOSES OF 4 MG
     Route: 042
  5. METHADONE [Suspect]
     Indication: DRUG WITHDRAWAL SYNDROME
     Dosage: THREE DOSES OF 10 MG OVER 12 HOURS
     Route: 042
  6. METHADONE [Suspect]
     Route: 048
  7. HYDROMORPHONE [Suspect]
     Indication: PRODUCT USED FOR UNKNOWN INDICATION
     Route: 065

REACTIONS (4)
  - Electrocardiogram QT prolonged [Unknown]
  - Torsade de pointes [Unknown]
  - Ventricular tachycardia [Unknown]
  - Unresponsive to stimuli [Unknown]
